FAERS Safety Report 6021659-1 (Version None)
Quarter: 2008Q4

REPORT INFORMATION
  Report Type: 
  Country: None (occurrence: None)
  Receive Date: 20081222
  Receipt Date: 20081210
  Transmission Date: 20090506
  Serious: Yes (Hospitalization)
  Sender: FDA-Public Use
  Company Number: IPS_01393_2008

PATIENT
  Sex: Male

DRUGS (1)
  1. APO-GO (APO-GO - APOMORPHINE HYDROCHLORIDE) (NOT SPECIFIED) [Suspect]
     Indication: DRUG USE FOR UNKNOWN INDICATION
     Dosage: (8 MG PER HOUR FOR 0 MONTHS FROM 07:00 H. TO 22:00 H. SUBCUTANEOUS)
     Route: 058
     Dates: start: 20081023, end: 20080101

REACTIONS (2)
  - DRUG EFFECT DECREASED [None]
  - FEMORAL NECK FRACTURE [None]
